FAERS Safety Report 8947556 (Version 1)
Quarter: 2012Q4

REPORT INFORMATION
  Report Type: 
  Country: CA (occurrence: CA)
  Receive Date: 20121204
  Receipt Date: 20121204
  Transmission Date: 20130627
  Serious: Yes (Other)
  Sender: FDA-Public Use
  Company Number: CA-ROCHE-1163881

PATIENT
  Sex: Female

DRUGS (1)
  1. XOLAIR [Suspect]
     Indication: ASTHMA
     Route: 065
     Dates: start: 20070918

REACTIONS (4)
  - Asthma [Recovering/Resolving]
  - Bronchitis [Unknown]
  - Anxiety [Unknown]
  - Nasopharyngitis [Unknown]
